FAERS Safety Report 13361232 (Version 1)
Quarter: 2017Q1

REPORT INFORMATION
  Report Type: Spontaneous
  Country: GB (occurrence: GB)
  Receive Date: 20170322
  Receipt Date: 20170322
  Transmission Date: 20170429
  Serious: Yes (Other)
  Sender: FDA-Public Use
  Company Number: PHHY2017GB037428

PATIENT
  Sex: Male

DRUGS (2)
  1. SERTRALINE [Suspect]
     Active Substance: SERTRALINE HYDROCHLORIDE
     Indication: PRODUCT USED FOR UNKNOWN INDICATION
     Route: 065
     Dates: start: 1999
  2. NEFAZODONE [Suspect]
     Active Substance: NEFAZODONE
     Indication: PRODUCT USED FOR UNKNOWN INDICATION
     Route: 065

REACTIONS (6)
  - Male sexual dysfunction [Not Recovered/Not Resolved]
  - Muscle twitching [Recovered/Resolved]
  - Withdrawal syndrome [Recovered/Resolved]
  - Genital hypoaesthesia [Not Recovered/Not Resolved]
  - Formication [Recovered/Resolved]
  - Loss of libido [Not Recovered/Not Resolved]
